FAERS Safety Report 7842617-8 (Version None)
Quarter: 2011Q4

REPORT INFORMATION
  Report Type: 
  Country: None (occurrence: None)
  Receive Date: 20111025
  Receipt Date: 20111019
  Transmission Date: 20120403
  Serious: Yes (Hospitalization, Other)
  Sender: FDA-Public Use
  Company Number: JP-PFIZER INC-2011194548

PATIENT
  Age: 42 Year
  Sex: Female
  Weight: 45 kg

DRUGS (3)
  1. LOXONIN [Concomitant]
     Indication: PAIN
     Dosage: 60 MG, AS NEEDED
     Dates: start: 20110518
  2. ZANTAC [Concomitant]
     Dosage: 150 MG, 2X/DAY
     Dates: start: 20110518
  3. AZULFIDINE [Suspect]
     Indication: SPONDYLITIS
     Dosage: 500 MG, 1X/DAY
     Route: 048
     Dates: start: 20110714, end: 20110818

REACTIONS (4)
  - LISTLESS [None]
  - URTICARIA [None]
  - PYREXIA [None]
  - HEPATIC FUNCTION ABNORMAL [None]
